FAERS Safety Report 9297960 (Version 3)
Quarter: 2013Q2

REPORT INFORMATION
  Report Type: Spontaneous
  Country: US (occurrence: US)
  Receive Date: 20130520
  Receipt Date: 20130628
  Transmission Date: 20140414
  Serious: No
  Sender: FDA-Public Use
  Company Number: US-JNJFOC-20130502307

PATIENT
  Age: 62 Year
  Sex: Female

DRUGS (1)
  1. INVEGA [Suspect]
     Indication: PRODUCT USED FOR UNKNOWN INDICATION
     Dosage: TREATEMENT ONGOING 04/07 (UNSPECIFIED DATE) TO PRESENT
     Route: 048

REACTIONS (2)
  - Adverse event [Unknown]
  - Malaise [Recovered/Resolved]
